FAERS Safety Report 7367106-9 (Version None)
Quarter: 2011Q1

REPORT INFORMATION
  Report Type: 
  Country: None (occurrence: None)
  Receive Date: 20110322
  Receipt Date: 20110310
  Transmission Date: 20110831
  Serious: Yes (Other)
  Sender: FDA-Public Use
  Company Number: NL-JNJFOC-20110304221

PATIENT
  Sex: Female

DRUGS (4)
  1. LAMICTAL [Concomitant]
     Route: 065
  2. TOPAMAX [Suspect]
     Indication: EPILEPSY
     Route: 048
  3. LAMICTAL [Concomitant]
     Dosage: 0-0-100
     Route: 065
  4. RIVOTRIL [Concomitant]
     Dosage: TIMES PER AS NECESSARY
     Route: 065

REACTIONS (1)
  - ACNE CONGLOBATA [None]
